FAERS Safety Report 5021426-1 (Version None)
Quarter: 2006Q2

REPORT INFORMATION
  Report Type: 
  Country: None (occurrence: None)
  Receive Date: 20060608
  Receipt Date: 20060505
  Transmission Date: 20061013
  Serious: Yes (Other)
  Sender: FDA-Public Use
  Company Number: BR-BRISTOL-MYERS SQUIBB COMPANY-13371331

PATIENT
  Age: 57 Year
  Sex: Female
  Weight: 60 kg

DRUGS (3)
  1. TAXOL [Suspect]
     Indication: BREAST CANCER
     Dosage: INTERRUPTED 17-APR-06
     Route: 042
     Dates: start: 20060401
  2. PARAPLATIN [Suspect]
     Indication: BREAST CANCER
     Dosage: INTERRUPTED 17-APR-2006
     Dates: start: 20060401
  3. HERCEPTIN [Suspect]
     Indication: BREAST CANCER
     Dosage: INTERRUPTED 17-APR-06
     Dates: start: 20060401

REACTIONS (22)
  - ALOPECIA [None]
  - ANOREXIA [None]
  - ASTHENIA [None]
  - CONVULSION [None]
  - CRYING [None]
  - DIZZINESS [None]
  - DYSGEUSIA [None]
  - DYSPHAGIA [None]
  - DYSURIA [None]
  - EPISTAXIS [None]
  - FORMICATION [None]
  - HEAD DISCOMFORT [None]
  - HYPOTENSION [None]
  - LETHARGY [None]
  - NAIL DISCOLOURATION [None]
  - NAUSEA [None]
  - SKIN FRAGILITY [None]
  - TACHYCARDIA [None]
  - THROMBOCYTOPENIA [None]
  - TINNITUS [None]
  - VISUAL DISTURBANCE [None]
  - VOMITING [None]
